FAERS Safety Report 10086536 (Version 1)
Quarter: 2014Q2

REPORT INFORMATION
  Report Type: Spontaneous
  Country: US (occurrence: US)
  Receive Date: 20140418
  Receipt Date: 20140418
  Transmission Date: 20141212
  Serious: Yes (Other)
  Sender: FDA-Public Use
  Company Number: US-TEVA-475860USA

PATIENT
  Sex: 0

DRUGS (2)
  1. COPAXONE 40 MG [Suspect]
     Indication: MULTIPLE SCLEROSIS
     Dosage: 3 TIMES A WEEK
  2. COPAXONE 40 MG [Suspect]

REACTIONS (2)
  - Multiple sclerosis relapse [Unknown]
  - Injection site pain [Unknown]
